FAERS Safety Report 5961723-6 (Version None)
Quarter: 2008Q4

REPORT INFORMATION
  Report Type: 
  Country: None (occurrence: None)
  Receive Date: 20081114
  Receipt Date: 20080819
  Transmission Date: 20090506
  Serious: No
  Sender: FDA-Public Use
  Company Number: WAES 0808USA03596

PATIENT
  Age: 58 Year
  Sex: Male

DRUGS (5)
  1. ISENTRESS [Suspect]
     Indication: HIV INFECTION
  2. NORVIR [Concomitant]
  3. PREZISTA [Concomitant]
  4. TRUVADA [Concomitant]
  5. ZERIT [Concomitant]

REACTIONS (1)
  - ALOPECIA UNIVERSALIS [None]
